FAERS Safety Report 5777570-4 (Version None)
Quarter: 2008Q2

REPORT INFORMATION
  Report Type: 
  Country: None (occurrence: None)
  Receive Date: 20080618
  Receipt Date: 20080606
  Transmission Date: 20081010
  Serious: Yes (Life-Threatening, Other)
  Sender: FDA-Public Use
  Company Number: GB-PFIZER INC-2007093900

PATIENT
  Age: 25 Year
  Sex: Female

DRUGS (2)
  1. CHANTIX [Suspect]
     Indication: SMOKING CESSATION THERAPY
     Route: 048
  2. ALBUTEROL [Concomitant]

REACTIONS (3)
  - DEPRESSION [None]
  - DEPRESSION SUICIDAL [None]
  - SUICIDAL IDEATION [None]
